FAERS Safety Report 6565766-3 (Version None)
Quarter: 2010Q1

REPORT INFORMATION
  Report Type: 
  Country: None (occurrence: None)
  Receive Date: 20100201
  Receipt Date: 20100111
  Transmission Date: 20100710
  Serious: Yes (Other)
  Sender: FDA-Public Use
  Company Number: US-ABBOTT-10P-163-0618688-00

PATIENT
  Age: 90 Year
  Sex: Male

DRUGS (1)
  1. LUPRON DEPOT [Suspect]
     Indication: PROSTATE CANCER
     Dates: start: 20080101, end: 20090101

REACTIONS (4)
  - BONE NEOPLASM MALIGNANT [None]
  - CANCER PAIN [None]
  - DRUG INEFFECTIVE [None]
  - PROSTATE CANCER METASTATIC [None]
